FAERS Safety Report 11220170 (Version 1)
Quarter: 2015Q2

REPORT INFORMATION
  Report Type: Spontaneous
  Country: US (occurrence: None)
  Receive Date: 20150624
  Receipt Date: 20150624
  Transmission Date: 20150821
  Serious: No
  Sender: FDA-Public Use
  Company Number: None

PATIENT
  Age: 33 Year
  Sex: Female
  Weight: 65.77 kg

DRUGS (1)
  1. AFRIN [Suspect]
     Active Substance: OXYMETAZOLINE
     Indication: PRODUCT USED FOR UNKNOWN INDICATION
     Dosage: NASALLY
     Route: 045
     Dates: start: 20150616, end: 20150616

REACTIONS (18)
  - Respiratory disorder [None]
  - Lacrimation increased [None]
  - Cough [None]
  - Dyspnoea [None]
  - Burning sensation [None]
  - Ocular hyperaemia [None]
  - Eye pruritus [None]
  - Dizziness [None]
  - Malaise [None]
  - Pain [None]
  - Sneezing [None]
  - Feeling abnormal [None]
  - Nasal congestion [None]
  - Pharyngeal oedema [None]
  - Rhinorrhoea [None]
  - Nasal mucosal disorder [None]
  - Eye pain [None]
  - Headache [None]

NARRATIVE: CASE EVENT DATE: 20150616
